FAERS Safety Report 17000103 (Version 1)
Quarter: 2019Q4

REPORT INFORMATION
  Report Type: Report from Study
  Country: US (occurrence: US)
  Receive Date: 20191106
  Receipt Date: 20191106
  Transmission Date: 20200122
  Serious: Yes (Hospitalization)
  Sender: FDA-Public Use
  Company Number: US-TAIHO ONCOLOGY  INC-EU-2019-03600

PATIENT
  Age: 55 Year
  Sex: Female
  Weight: 59.02 kg

DRUGS (1)
  1. LONSURF [Suspect]
     Active Substance: TIPIRACIL HYDROCHLORIDE\TRIFLURIDINE
     Indication: COLON CANCER
     Dosage: CURRENT CYCLE 2, WAS INTERRUPTED IN THE MIDDLE AND THEN RESUMED?DOSAGE: 40 MG IN THE AM, 60 MG IN TH
     Route: 048
     Dates: start: 201909

REACTIONS (2)
  - Back pain [Unknown]
  - Kidney infection [Recovered/Resolved]

NARRATIVE: CASE EVENT DATE: 20191005
